FAERS Safety Report 13734292 (Version 3)
Quarter: 2017Q3

REPORT INFORMATION
  Report Type: Spontaneous
  Country: GB (occurrence: CY)
  Receive Date: 20170708
  Receipt Date: 20170717
  Transmission Date: 20171127
  Serious: Yes (Hospitalization, Other)
  Sender: FDA-Public Use
  Company Number: GB-TEVA-782737ACC

PATIENT
  Age: 43 Year
  Sex: Male

DRUGS (7)
  1. ALENDRONATE SODIUM. [Suspect]
     Active Substance: ALENDRONATE SODIUM
     Route: 048
  2. SIMPONI [Suspect]
     Active Substance: GOLIMUMAB
     Route: 065
     Dates: start: 20170612
  3. AMITRIPTYLINE [Suspect]
     Active Substance: AMITRIPTYLINE
     Dosage: 20 MILLIGRAM DAILY;
     Route: 048
  4. ARCOXIA [Suspect]
     Active Substance: ETORICOXIB
     Dosage: 90 MILLIGRAM DAILY;
  5. OMEPRAZOLE. [Suspect]
     Active Substance: OMEPRAZOLE
  6. SIMPONI [Suspect]
     Active Substance: GOLIMUMAB
     Indication: PRODUCT USED FOR UNKNOWN INDICATION
     Route: 058
     Dates: start: 20170612
  7. ADCAL-D3 [Suspect]
     Active Substance: CALCIUM CARBONATE\CHOLECALCIFEROL

REACTIONS (2)
  - Loss of consciousness [Unknown]
  - Heart rate increased [Unknown]

NARRATIVE: CASE EVENT DATE: 20170613
